FAERS Safety Report 12171201 (Version 2)
Quarter: 2016Q1

REPORT INFORMATION
  Report Type: Report from Study
  Country: IN (occurrence: IN)
  Receive Date: 20160311
  Receipt Date: 20160322
  Transmission Date: 20160526
  Serious: Yes (Death, Hospitalization)
  Sender: FDA-Public Use
  Company Number: IN-B.I. PHARMACEUTICALS,INC./RIDGEFIELD-2016-BI-14930BI

PATIENT
  Age: 43 Year
  Sex: Male
  Weight: 38 kg

DRUGS (1)
  1. BIBW 2992 [Suspect]
     Active Substance: AFATINIB
     Indication: SQUAMOUS CELL CARCINOMA OF HEAD AND NECK
     Dosage: 40 MG
     Route: 048
     Dates: start: 20151221, end: 20160310

REACTIONS (6)
  - Dyspnoea [Recovered/Resolved]
  - Dyspnoea [Fatal]
  - Dysphagia [Not Recovered/Not Resolved]
  - Pneumomediastinum [Fatal]
  - Decreased appetite [Not Recovered/Not Resolved]
  - Asthenia [Not Recovered/Not Resolved]

NARRATIVE: CASE EVENT DATE: 20160305
